FAERS Safety Report 6297064-X (Version None)
Quarter: 2009Q3

REPORT INFORMATION
  Report Type: 
  Country: None (occurrence: None)
  Receive Date: 20090804
  Receipt Date: 20090730
  Transmission Date: 20100115
  Serious: Yes (Life-Threatening, Hospitalization, Other)
  Sender: FDA-Public Use
  Company Number: US-GENENTECH-277592

PATIENT
  Sex: Female

DRUGS (13)
  1. OMALIZUMAB [Suspect]
     Indication: ASTHMA
     Dosage: 300 MG, Q2W
     Route: 058
     Dates: start: 20080707
  2. MAGNESIUM SULFATE [Suspect]
     Indication: DRUG USE FOR UNKNOWN INDICATION
  3. COMBIVENT [Concomitant]
     Indication: ASTHMA
     Dosage: 2 PUFF, PRN
  4. SINGULAIR [Concomitant]
     Indication: ASTHMA
     Dosage: 10 MG, QD
     Route: 048
  5. LORATADINE [Concomitant]
     Indication: HYPERSENSITIVITY
     Dosage: 10 MG, QD
     Route: 048
  6. PROTONIX [Concomitant]
     Indication: GASTROOESOPHAGEAL REFLUX DISEASE
     Dosage: 40 MG, QD
     Route: 048
  7. METOCLOPRAMIDE [Concomitant]
     Indication: NAUSEA
     Dosage: UNK
  8. FERROUS SULFATE TAB [Concomitant]
     Indication: VITAMIN SUPPLEMENTATION
     Dosage: 1 TABLET, QD
     Route: 048
  9. VITAMIN TAB [Concomitant]
     Indication: VITAMIN SUPPLEMENTATION
     Dosage: 1 TABLET, QD
     Route: 048
  10. ADVAIR HFA [Concomitant]
     Indication: ASTHMA
     Dosage: 2 PUFF, BID
  11. ASMANEX TWISTHALER [Concomitant]
     Indication: ASTHMA
     Dosage: 2 PUFF, QD
  12. HYDROCHLOROTHIAZIDE [Concomitant]
     Indication: HYPERTENSION
     Dosage: 25 MG, QD
     Route: 048
  13. METOPROLOL [Concomitant]
     Indication: HYPERTENSION
     Dosage: 125 MG, QD
     Route: 048

REACTIONS (3)
  - DRUG EXPOSURE DURING PREGNANCY [None]
  - PRE-ECLAMPSIA [None]
  - RESPIRATORY FAILURE [None]
